FAERS Safety Report 8112841-8 (Version None)
Quarter: 2012Q1

REPORT INFORMATION
  Report Type: 
  Country: None (occurrence: None)
  Receive Date: 20120203
  Receipt Date: 20120130
  Transmission Date: 20120608
  Serious: Yes (Life-Threatening, Hospitalization, Other)
  Sender: FDA-Public Use
  Company Number: US-BAYER-2012-010999

PATIENT
  Age: 16 Year
  Sex: Female
  Weight: 72.562 kg

DRUGS (6)
  1. ASCORBIC ACID [Concomitant]
     Dosage: UNK
     Dates: start: 19950101, end: 20100101
  2. YAZ [Suspect]
     Indication: ACNE
     Dosage: UNK
     Dates: start: 20070101, end: 20090701
  3. PHENERGAN [Concomitant]
     Dosage: UNK
     Route: 048
     Dates: start: 20031224, end: 20090915
  4. FLONASE [Concomitant]
     Dosage: UNK UNK, BID
     Dates: start: 20080904, end: 20090911
  5. YAZ [Suspect]
     Indication: PREMENSTRUAL SYNDROME
  6. IBUPROFEN [Concomitant]
     Dosage: UNK
     Dates: start: 20050101, end: 20100101

REACTIONS (4)
  - GALLBLADDER DISORDER [None]
  - BILIARY DYSKINESIA [None]
  - INJURY [None]
  - CHOLECYSTITIS CHRONIC [None]
